FAERS Safety Report 10572146 (Version 1)
Quarter: 2014Q4

REPORT INFORMATION
  Report Type: Report from Study
  Country: US (occurrence: US)
  Receive Date: 20141107
  Receipt Date: 20141107
  Transmission Date: 20150529
  Serious: Yes (Hospitalization)
  Sender: FDA-Public Use
  Company Number: US-MERCK-1411USA001592

PATIENT
  Age: 68 Year
  Sex: Male
  Weight: 81.6 kg

DRUGS (3)
  1. LOMOTIL (ATROPINE SULFATE (+) DIPHENOXYLATE HYDROCHLORIDE) [Concomitant]
     Dosage: UNK, QID
     Route: 048
     Dates: start: 20140321
  2. PEGINTERFERON ALFA-2B [Suspect]
     Active Substance: PEGINTERFERON ALFA-2B
     Indication: MALIGNANT MELANOMA STAGE IV
     Dosage: 2 MICROGRAM PER KILOGRAM, QW
     Route: 058
     Dates: start: 20130111, end: 20140815
  3. FLOMAX [Concomitant]
     Active Substance: TAMSULOSIN HYDROCHLORIDE
     Dosage: 0.4 MG, BID
     Route: 048
     Dates: start: 20130903

REACTIONS (2)
  - Haemodynamic instability [Unknown]
  - Atrial fibrillation [Unknown]

NARRATIVE: CASE EVENT DATE: 20140822
